FAERS Safety Report 14247309 (Version 1)
Quarter: 2017Q4

REPORT INFORMATION
  Report Type: Spontaneous
  Country: GB (occurrence: GB)
  Receive Date: 20171204
  Receipt Date: 20171204
  Transmission Date: 20180321
  Serious: Yes (Other)
  Sender: FDA-Public Use
  Company Number: GB-009507513-1712GBR001479

PATIENT
  Age: 76 Year
  Sex: Male

DRUGS (1)
  1. PEMBROLIZUMAB. [Suspect]
     Active Substance: PEMBROLIZUMAB
     Indication: METASTASES TO PERITONEUM
     Dosage: UNK UNK, ONCE
     Route: 042

REACTIONS (3)
  - Vanishing bile duct syndrome [Not Recovered/Not Resolved]
  - Off label use [Unknown]
  - Hepatotoxicity [Not Recovered/Not Resolved]
